FAERS Safety Report 7736276-2 (Version None)
Quarter: 2011Q3

REPORT INFORMATION
  Report Type: 
  Country: None (occurrence: None)
  Receive Date: 20110902
  Receipt Date: 20110817
  Transmission Date: 20111222
  Serious: Yes (Death)
  Sender: FDA-Public Use
  Company Number: FK201101761

PATIENT
  Sex: Male

DRUGS (2)
  1. METHOTREXATE [Suspect]
     Indication: ABORTION INDUCED
     Dosage: 75 MG, INTRAMUSCULAR
     Route: 030
  2. MISOPROSTOL [Suspect]
     Indication: ABORTION INDUCED
     Dosage: 200 ?G

REACTIONS (23)
  - APGAR SCORE LOW [None]
  - MULTIPLE CONGENITAL ABNORMALITIES [None]
  - BRONCHOPULMONARY DYSPLASIA [None]
  - DYSMORPHISM [None]
  - CRYPTORCHISM [None]
  - CLEFT PALATE [None]
  - INDUCED ABORTION FAILED [None]
  - PERSISTENT FOETAL CIRCULATION [None]
  - COR PULMONALE [None]
  - CAESAREAN SECTION [None]
  - DELAYED FONTANELLE CLOSURE [None]
  - LOW SET EARS [None]
  - CONGENITAL MUSCULOSKELETAL ANOMALY [None]
  - PULMONARY HYPOPLASIA [None]
  - PULMONARY MALFORMATION [None]
  - PREMATURE LABOUR [None]
  - CONGENITAL ANOMALY [None]
  - HYPOXIA [None]
  - MICROGNATHIA [None]
  - MATERNAL DRUGS AFFECTING FOETUS [None]
  - FOETAL GROWTH RESTRICTION [None]
  - FOETAL HEART RATE DECREASED [None]
  - RESPIRATORY FAILURE [None]
